FAERS Safety Report 15110336 (Version 4)
Quarter: 2018Q3

REPORT INFORMATION
  Report Type: Spontaneous
  Country: JP (occurrence: JP)
  Receive Date: 20180705
  Receipt Date: 20180921
  Transmission Date: 20181010
  Serious: Yes (Hospitalization, Other)
  Sender: FDA-Public Use
  Company Number: JP-VIIV HEALTHCARE LIMITED-JP2018JPN116994

PATIENT
  Age: 43 Year
  Sex: Male

DRUGS (4)
  1. TIVICAY [Suspect]
     Active Substance: DOLUTEGRAVIR SODIUM
     Indication: HIV INFECTION
     Dosage: 50 MG, QD
     Route: 048
     Dates: start: 20180628, end: 20180702
  2. DESCOVY [Concomitant]
     Active Substance: EMTRICITABINE\TENOFOVIR ALAFENAMIDE FUMARATE
     Indication: HIV INFECTION
     Dosage: 200/25 MG, QD
     Dates: start: 20180628, end: 20180702
  3. DIFLUCAN [Concomitant]
     Active Substance: FLUCONAZOLE
     Indication: ORAL CANDIDIASIS
     Dosage: 100 MG, QD
     Dates: start: 20180507
  4. DIFLUCAN [Concomitant]
     Active Substance: FLUCONAZOLE
     Dosage: 100 MG, QD
     Dates: start: 20180628, end: 20180702

REACTIONS (4)
  - Hypersensitivity [Recovered/Resolved]
  - Pyrexia [Recovering/Resolving]
  - Rash [Recovering/Resolving]
  - Generalised erythema [Recovered/Resolved]

NARRATIVE: CASE EVENT DATE: 20180702
